FAERS Safety Report 5124519-3 (Version None)
Quarter: 2006Q3

REPORT INFORMATION
  Report Type: 
  Country: None (occurrence: None)
  Receive Date: 20060821
  Receipt Date: 20060710
  Transmission Date: 20061208
  Serious: No
  Sender: FDA-Public Use
  Company Number: TPA2006A00902

PATIENT
  Age: 45 Year
  Sex: Female
  Weight: 77.1115 kg

DRUGS (7)
  1. ROZEREM [Suspect]
     Indication: INSOMNIA
     Dosage: 8 MG, AS REQUIRED, PER ORAL
     Route: 048
     Dates: start: 20060201, end: 20060301
  2. SOMA [Concomitant]
  3. VICODIN [Concomitant]
  4. ATENOLOL (ATENOLOL) (50 MILLIGRAM) [Concomitant]
  5. LASIX (FUROSEMIDE) (40 MILLIGRAM) [Concomitant]
  6. L-THYROXINE (LEVOTHYROXINE) (100 MICROCURIE(S)) [Concomitant]
  7. METFORMIN (METFORMIN) (500 MILLIGRAM) [Concomitant]

REACTIONS (1)
  - DRUG SCREEN POSITIVE [None]
